FAERS Safety Report 24007322 (Version 1)
Quarter: 2024Q2

REPORT INFORMATION
  Report Type: Report from Study
  Country: US (occurrence: US)
  Receive Date: 20240624
  Receipt Date: 20240624
  Transmission Date: 20240716
  Serious: Yes (Hospitalization)
  Sender: FDA-Public Use
  Company Number: US-NOVITIUMPHARMA-2024USNVP01080

PATIENT
  Age: 6 Year
  Sex: Male
  Weight: 26 kg

DRUGS (1)
  1. CARGLUMIC ACID [Suspect]
     Active Substance: CARGLUMIC ACID
     Indication: Propionic acidaemia
     Dates: start: 20230210

REACTIONS (3)
  - Food intolerance [Unknown]
  - Ammonia increased [Unknown]
  - Vomiting [Unknown]
